FAERS Safety Report 14939074 (Version 2)
Quarter: 2018Q2

REPORT INFORMATION
  Report Type: Spontaneous
  Country: US (occurrence: US)
  Receive Date: 20180525
  Receipt Date: 20180626
  Transmission Date: 20180711
  Serious: No
  Sender: FDA-Public Use
  Company Number: US-PFIZER INC-2018213468

PATIENT
  Age: 67 Year
  Sex: Male

DRUGS (3)
  1. TESTOSTERONE CIPIONATE [Suspect]
     Active Substance: TESTOSTERONE
     Dosage: 120 MG, UNK [120 MG (0.6CC) IM EVERY TWO WEEKS ]
     Route: 030
  2. TESTOSTERONE CIPIONATE [Suspect]
     Active Substance: TESTOSTERONE
     Dosage: UNK
  3. TESTOSTERONE CIPIONATE [Suspect]
     Active Substance: TESTOSTERONE
     Dosage: UNK [0.5 CC TO 0.6 CC EVERY TWO WEEKS ]

REACTIONS (4)
  - Overdose [Unknown]
  - Intentional product misuse [Unknown]
  - Malaise [Unknown]
  - Fatigue [Unknown]
